FAERS Safety Report 9473076 (Version 1)
Quarter: 2013Q3

REPORT INFORMATION
  Report Type: Spontaneous
  Country: US (occurrence: US)
  Receive Date: 20130823
  Receipt Date: 20130823
  Transmission Date: 20140515
  Serious: No
  Sender: FDA-Public Use
  Company Number: US-009507513-1308USA009321

PATIENT
  Sex: Female

DRUGS (2)
  1. SAPHRIS [Suspect]
     Indication: BIPOLAR DISORDER
     Dosage: 5 MG, BID
     Route: 060
  2. SAPHRIS [Suspect]
     Dosage: LOWER THAN 5 MG DOSE
     Route: 060

REACTIONS (3)
  - Tardive dyskinesia [Not Recovered/Not Resolved]
  - Drug prescribing error [Unknown]
  - Underdose [Unknown]
